FAERS Safety Report 21384524 (Version 1)
Quarter: 2022Q3

REPORT INFORMATION
  Report Type: Report from Study
  Country: US (occurrence: US)
  Receive Date: 20220928
  Receipt Date: 20220928
  Transmission Date: 20221027
  Serious: Yes (Hospitalization)
  Sender: FDA-Public Use
  Company Number: US-EXELIXIS-CABO-22050753

PATIENT
  Age: 58 Year
  Sex: Male
  Weight: 98.844 kg

DRUGS (6)
  1. CABOMETYX [Suspect]
     Active Substance: CABOZANTINIB S-MALATE
     Indication: Renal cancer
     Dosage: 60 MG, DAILY FOR 5 DAYS ON, 2 DAYS OFF
     Route: 048
     Dates: start: 20220312
  2. CABOMETYX [Suspect]
     Active Substance: CABOZANTINIB S-MALATE
     Dosage: 60 MG, QD
     Route: 048
     Dates: start: 20220321, end: 202204
  3. CABOMETYX [Suspect]
     Active Substance: CABOZANTINIB S-MALATE
     Dosage: 60 MG, QD
     Route: 048
     Dates: start: 202204
  4. CABOMETYX [Suspect]
     Active Substance: CABOZANTINIB S-MALATE
     Dosage: 60 MG, QD
     Route: 048
  5. ELIQUIS [Concomitant]
     Active Substance: APIXABAN
     Dosage: UNK
  6. BIOLOGICS (UNSPECIFIED) [Concomitant]
     Dosage: UNK

REACTIONS (12)
  - Pseudostroke [Recovered/Resolved]
  - Piloerection [Recovering/Resolving]
  - Chest discomfort [Recovered/Resolved]
  - Limb discomfort [Recovered/Resolved]
  - Anxiety [Unknown]
  - Feeling abnormal [Unknown]
  - Ageusia [Unknown]
  - Blood pressure increased [Recovered/Resolved]
  - Constipation [Recovering/Resolving]
  - Nausea [Unknown]
  - Product dose omission issue [Unknown]
  - Inappropriate schedule of product administration [Unknown]

NARRATIVE: CASE EVENT DATE: 20220401
